FAERS Safety Report 14224122 (Version 1)
Quarter: 2017Q4

REPORT INFORMATION
  Report Type: Spontaneous
  Country: US (occurrence: US)
  Receive Date: 20171125
  Receipt Date: 20171125
  Transmission Date: 20180321
  Serious: Yes (Other)
  Sender: FDA-Public Use
  Company Number: None

PATIENT
  Age: 74 Year
  Sex: Male
  Weight: 76.5 kg

DRUGS (6)
  1. LEVOTHROXINE [Concomitant]
     Active Substance: LEVOTHYROXINE
  2. GLUCOSAMINE HCI W/MSM [Concomitant]
  3. ARESTIN [Suspect]
     Active Substance: MINOCYCLINE HYDROCHLORIDE
     Indication: PRODUCT USED FOR UNKNOWN INDICATION
     Route: 048
     Dates: start: 20171116, end: 20171116
  4. MULTI-VITAMINE [Concomitant]
  5. CALCIUM [Concomitant]
     Active Substance: CALCIUM
  6. TAMSULOSIN [Concomitant]
     Active Substance: TAMSULOSIN

REACTIONS (2)
  - Headache [None]
  - Pyrexia [None]

NARRATIVE: CASE EVENT DATE: 20171116
